FAERS Safety Report 5199058-4 (Version None)
Quarter: 2006Q4

REPORT INFORMATION
  Report Type: 
  Country: None (occurrence: None)
  Receive Date: 20060919
  Receipt Date: 20051212
  Transmission Date: 20070319
  Serious: Yes (Other)
  Sender: FDA-Public Use
  Company Number: HQWYE997814DEC05

PATIENT
  Age: 81 Year
  Sex: Male
  Weight: 106.24 kg

DRUGS (2)
  1. ADVIL [Suspect]
     Indication: PAIN
     Dosage: 2 CAPSULE 1X PER 1 DAY, ORAL
     Route: 048
     Dates: start: 20051201, end: 20051201
  2. ATENOLOL [Concomitant]

REACTIONS (1)
  - CHOKING [None]
